FAERS Safety Report 21329740 (Version 1)
Quarter: 2022Q3

REPORT INFORMATION
  Report Type: Spontaneous
  Country: US (occurrence: None)
  Receive Date: 20220913
  Receipt Date: 20220913
  Transmission Date: 20221026
  Serious: Yes (unspecified)
  Sender: FDA-Public Use
  Company Number: None

PATIENT
  Age: 52 Year
  Sex: Female

DRUGS (1)
  1. ALBUTEROL SULFATE [Suspect]
     Active Substance: ALBUTEROL SULFATE
     Indication: Chronic obstructive pulmonary disease
     Dosage: FREQUENCY : AS NEEDED;?
     Route: 048
     Dates: start: 20220701, end: 20220910

REACTIONS (2)
  - Wheezing [None]
  - Therapeutic product effect decreased [None]

NARRATIVE: CASE EVENT DATE: 20220905
